FAERS Safety Report 6803345-0 (Version None)
Quarter: 2010Q2

REPORT INFORMATION
  Report Type: 
  Country: None (occurrence: None)
  Receive Date: 20100628
  Receipt Date: 20100621
  Transmission Date: 20101027
  Serious: Yes (Death)
  Sender: FDA-Public Use
  Company Number: US-ABBOTT-10P-163-0646570-00

PATIENT
  Sex: Female
  Weight: 86.6 kg

DRUGS (2)
  1. CYCLOSPORINE [Suspect]
     Indication: APLASIA PURE RED CELL
     Dates: end: 20090527
  2. PREDNISONE [Suspect]
     Indication: APLASIA PURE RED CELL
     Route: 048

REACTIONS (1)
  - ACUTE MYELOID LEUKAEMIA [None]
